FAERS Safety Report 22059298 (Version 1)
Quarter: 2023Q1

REPORT INFORMATION
  Report Type: Spontaneous
  Country: US (occurrence: None)
  Receive Date: 20230302
  Receipt Date: 20230302
  Transmission Date: 20230417
  Serious: Yes (Hospitalization)
  Sender: FDA-Public Use
  Company Number: None

PATIENT
  Age: 57 Year
  Sex: Female
  Weight: 84 kg

DRUGS (1)
  1. ENHERTU [Suspect]
     Active Substance: FAM-TRASTUZUMAB DERUXTECAN-NXKI
     Indication: Breast cancer metastatic
     Dosage: OTHER FREQUENCY : EVERY 3 WEEKS;?
     Route: 040
     Dates: start: 20220818, end: 20230105

REACTIONS (2)
  - Oxygen saturation decreased [None]
  - Interstitial lung disease [None]

NARRATIVE: CASE EVENT DATE: 20230123
